FAERS Safety Report 7211280-1 (Version None)
Quarter: 2011Q1

REPORT INFORMATION
  Report Type: 
  Country: None (occurrence: None)
  Receive Date: 20110105
  Receipt Date: 20101117
  Transmission Date: 20110831
  Serious: No
  Sender: FDA-Public Use
  Company Number: US-JNJFOC-20101106304

PATIENT
  Sex: Female

DRUGS (6)
  1. SEROQUEL [Concomitant]
  2. INDERAL ER [Concomitant]
  3. INVEGA SUSTENNA [Suspect]
     Indication: SCHIZOPHRENIA
     Route: 030
  4. BENZTROPINE MESYLATE [Concomitant]
  5. CITALOPRAM [Concomitant]
  6. NALTREXONE HYDROCHLORIDE [Concomitant]

REACTIONS (1)
  - INJECTION SITE REACTION [None]
